FAERS Safety Report 24754517 (Version 3)
Quarter: 2025Q1

REPORT INFORMATION
  Report Type: Spontaneous
  Country: US (occurrence: US)
  Receive Date: 20241219
  Receipt Date: 20250206
  Transmission Date: 20250408
  Serious: No
  Sender: GLAXOSMITHKLINE
  Company Number: US-GSKCCFUS-Case-02169601_AE-119507

PATIENT
  Age: 75 Year
  Sex: Female
  Weight: 69.85 kg

DRUGS (1)
  1. BENLYSTA [Suspect]
     Active Substance: BELIMUMAB
     Indication: Systemic lupus erythematosus
     Dosage: 200 MG, QD
     Route: 058
     Dates: start: 20241209

REACTIONS (5)
  - Accidental exposure to product [Unknown]
  - Exposure via skin contact [Recovered/Resolved]
  - Underdose [Unknown]
  - Product dose omission issue [Unknown]
  - Wrong technique in device usage process [Unknown]

NARRATIVE: CASE EVENT DATE: 20241209
